FAERS Safety Report 17870482 (Version 1)
Quarter: 2020Q2

REPORT INFORMATION
  Report Type: Spontaneous
  Country: US (occurrence: US)
  Receive Date: 20200608
  Receipt Date: 20200608
  Transmission Date: 20200714
  Serious: No
  Sender: FDA-Public Use
  Company Number: US-PFIZER INC-2020220447

PATIENT
  Age: 37 Year
  Sex: Female
  Weight: 72.57 kg

DRUGS (4)
  1. ESTROGENS CONJUGATED [Suspect]
     Active Substance: ESTROGENS, CONJUGATED
     Dosage: UNK
  2. DEPAKOTE [Concomitant]
     Active Substance: DIVALPROEX SODIUM
     Indication: BIPOLAR DISORDER
     Dosage: UNK
     Route: 048
  3. RISPERIDONE. [Concomitant]
     Active Substance: RISPERIDONE
     Indication: SLEEP DISORDER
     Dosage: UNK
     Route: 048
  4. CENTRUM WOMEN [Concomitant]
     Active Substance: VITAMINS
     Dosage: UNK, 2X/DAY (ONE IN THE MORNING AND ONE BEFORE BED)

REACTIONS (2)
  - Vomiting [Unknown]
  - Morning sickness [Unknown]
